FAERS Safety Report 21770924 (Version 4)
Quarter: 2023Q2

REPORT INFORMATION
  Report Type: Report from Study
  Country: US (occurrence: US)
  Receive Date: 20221223
  Receipt Date: 20230525
  Transmission Date: 20230721
  Serious: Yes (Other)
  Sender: FDA-Public Use
  Company Number: US-ABBVIE-4212942

PATIENT
  Sex: Female

DRUGS (2)
  1. HUMIRA [Suspect]
     Active Substance: ADALIMUMAB
     Indication: Psoriatic arthropathy
     Dosage: FORM STRENGTH :40 MILLIGRAM?CITRATE FREE
     Route: 058
     Dates: start: 20211229
  2. HUMIRA [Suspect]
     Active Substance: ADALIMUMAB
     Indication: Hidradenitis
     Dosage: FORM STRENGTH :40 MILLIGRAM?CITRATE FREE
     Route: 058

REACTIONS (2)
  - Meniscus injury [Not Recovered/Not Resolved]
  - Gingival disorder [Not Recovered/Not Resolved]
